FAERS Safety Report 4354929-3 (Version None)
Quarter: 2004Q2

REPORT INFORMATION
  Report Type: 
  Country: None (occurrence: None)
  Receive Date: 20040504
  Receipt Date: 20040423
  Transmission Date: 20050107
  Serious: No
  Sender: FDA-Public Use
  Company Number: 2004-115442-NL

PATIENT
  Age: 80 Year
  Sex: Male

DRUGS (6)
  1. MIRTAZAPINE [Suspect]
     Indication: DEPRESSION
     Dosage: 30 MG QD; ORAL
     Route: 048
     Dates: start: 20040315, end: 20040325
  2. ESOMEPRAZOLE [Concomitant]
  3. GINKGO BILOBA [Concomitant]
  4. DOMPERIDONE [Concomitant]
  5. AMLODIPINE [Concomitant]
  6. VALSARTAN [Concomitant]

REACTIONS (2)
  - HAEMATEMESIS [None]
  - IDIOPATHIC THROMBOCYTOPENIC PURPURA [None]
